FAERS Safety Report 9644030 (Version 3)
Quarter: 2019Q3

REPORT INFORMATION
  Report Type: Spontaneous
  Country: IT (occurrence: IT)
  Receive Date: 20131024
  Receipt Date: 20190926
  Transmission Date: 20191005
  Serious: Yes (Hospitalization, Other)
  Sender: FDA-Public Use
  Company Number: PHHY2013IT117157

PATIENT
  Age: 64 Year
  Sex: Male

DRUGS (1)
  1. AMOXICILLIN. [Suspect]
     Active Substance: AMOXICILLIN
     Indication: DENTAL DISORDER PROPHYLAXIS
     Dosage: 1 DF, UNK (1000 MG) (TAKEN A TOTAL OF 5 PILLS)
     Route: 048

REACTIONS (9)
  - Coronary artery disease [Recovered/Resolved]
  - Hyperhidrosis [Recovered/Resolved]
  - Kounis syndrome [Recovered/Resolved]
  - Chest pain [Recovered/Resolved]
  - Abdominal pain upper [Recovered/Resolved]
  - Asthenia [Recovered/Resolved]
  - Electrocardiogram abnormal [Recovered/Resolved]
  - Acute myocardial infarction [Recovered/Resolved]
  - Anaphylactic reaction [Recovered/Resolved]
